FAERS Safety Report 21999664 (Version 1)
Quarter: 2023Q1

REPORT INFORMATION
  Report Type: Spontaneous
  Country: IT (occurrence: None)
  Receive Date: 20230216
  Receipt Date: 20230216
  Transmission Date: 20230417
  Serious: Yes (Disabling)
  Sender: FDA-Public Use
  Company Number: None

PATIENT
  Age: 64 Year
  Sex: Male

DRUGS (2)
  1. AMPICILLIN SODIUM\SULBACTAM SODIUM [Suspect]
     Active Substance: AMPICILLIN SODIUM\SULBACTAM SODIUM
     Dosage: 3GX4 ()
     Dates: start: 202301
  2. VANCOMYCIN [Suspect]
     Active Substance: VANCOMYCIN
     Dosage: 4 FL/DIE ()
     Route: 042
     Dates: start: 2023

REACTIONS (1)
  - Ototoxicity [Not Recovered/Not Resolved]
